FAERS Safety Report 22824676 (Version 2)
Quarter: 2024Q3

REPORT INFORMATION
  Report Type: Spontaneous
  Country: US (occurrence: US)
  Receive Date: 20230815
  Receipt Date: 20240812
  Transmission Date: 20241017
  Serious: No
  Sender: ANI
  Company Number: US-ANIPHARMA-2023-US-022593

PATIENT
  Sex: Female

DRUGS (7)
  1. CORTICOTROPIN [Suspect]
     Active Substance: CORTICOTROPIN
     Indication: Multiple sclerosis
     Dosage: INJECT 80 UNITS (1ML) SUBCUTANEOUSLY TWO TIMES PER WEEK FOR 21 DAYS AS DIRECTED/ 80 UNITS DAILY INTR
     Route: 058
  2. IRON [Concomitant]
     Active Substance: IRON
     Route: 067
  3. PREDNISONE [Concomitant]
     Active Substance: PREDNISONE
     Route: 065
  4. VITAMIN D 400 [Concomitant]
     Route: 065
  5. BRIUMVI [Suspect]
     Active Substance: UBLITUXIMAB-XIIY
     Dosage: INFUSIONS
     Route: 065
  6. DULOXETINE HYDROCHLORIDE [Concomitant]
     Active Substance: DULOXETINE HYDROCHLORIDE
  7. PROPRANOLOL HCL CR [Concomitant]

REACTIONS (4)
  - Nausea [Unknown]
  - Renal pain [Unknown]
  - Blood bilirubin increased [Unknown]
  - Drug ineffective [Unknown]
